FAERS Safety Report 6499215-0 (Version None)
Quarter: 2009Q4

REPORT INFORMATION
  Report Type: 
  Country: None (occurrence: None)
  Receive Date: 20091215
  Receipt Date: 20091204
  Transmission Date: 20100525
  Serious: Yes (Other)
  Sender: FDA-Public Use
  Company Number: US-ABBOTT-09P-163-0613172-00

PATIENT
  Sex: Male

DRUGS (1)
  1. HUMIRA [Suspect]
     Indication: PSORIASIS
     Dates: start: 20090916, end: 20091020

REACTIONS (4)
  - ANGIOEDEMA [None]
  - BALANCE DISORDER [None]
  - DYSPNOEA [None]
  - OROPHARYNGEAL SWELLING [None]
